FAERS Safety Report 9967670 (Version 1)
Quarter: 2014Q1

REPORT INFORMATION
  Report Type: Report from Study
  Country: US (occurrence: US)
  Receive Date: 20140305
  Receipt Date: 20140305
  Transmission Date: 20141002
  Serious: Yes (Hospitalization)
  Sender: FDA-Public Use
  Company Number: US-ROCHE-1347400

PATIENT
  Age: 88 Year
  Sex: Male

DRUGS (3)
  1. LUCENTIS [Suspect]
     Indication: AGE-RELATED MACULAR DEGENERATION
     Route: 050
     Dates: start: 20111116
  2. AVASTIN [Suspect]
     Indication: PRODUCT USED FOR UNKNOWN INDICATION
     Dosage: OS
     Route: 065
     Dates: start: 20111007
  3. ASA [Concomitant]
     Route: 065

REACTIONS (5)
  - Foot fracture [Unknown]
  - Asthenopia [Unknown]
  - Eye pain [Unknown]
  - Visual acuity reduced [Unknown]
  - Drug ineffective [Unknown]
